FAERS Safety Report 5197410-4 (Version None)
Quarter: 2007Q1

REPORT INFORMATION
  Report Type: 
  Country: None (occurrence: None)
  Receive Date: 20070103
  Receipt Date: 20061227
  Transmission Date: 20070707
  Serious: Yes (Hospitalization)
  Sender: FDA-Public Use
  Company Number: GB-SANOFI-SYNTHELABO-F01200602583

PATIENT
  Sex: Male

DRUGS (2)
  1. FLUOROURACIL [Suspect]
     Route: 041
     Dates: start: 20061207, end: 20061208
  2. OXALIPLATIN [Suspect]
     Indication: COLORECTAL CANCER METASTATIC
     Route: 041
     Dates: start: 20061207, end: 20061207

REACTIONS (2)
  - CEREBRAL ARTERY EMBOLISM [None]
  - CEREBROVASCULAR ACCIDENT [None]
